FAERS Safety Report 19945497 (Version 2)
Quarter: 2021Q4

REPORT INFORMATION
  Report Type: Report from Study
  Country: US (occurrence: US)
  Receive Date: 20211012
  Receipt Date: 20211018
  Transmission Date: 20220303
  Serious: Yes (Other)
  Sender: FDA-Public Use
  Company Number: US-GLAXOSMITHKLINE-US2021135573

PATIENT
  Sex: Female

DRUGS (3)
  1. NIRAPARIB [Suspect]
     Active Substance: NIRAPARIB
     Indication: Malignant peritoneal neoplasm
     Dosage: 200 MG, QD
     Route: 048
     Dates: start: 202105
  2. NIRAPARIB [Suspect]
     Active Substance: NIRAPARIB
     Dosage: 1 DF, QD (100 MG)
     Route: 048
     Dates: start: 2021
  3. NIRAPARIB [Suspect]
     Active Substance: NIRAPARIB
     Dosage: 100 MG, QD
     Route: 048
     Dates: start: 2021

REACTIONS (5)
  - Malignant neoplasm progression [Not Recovered/Not Resolved]
  - Nausea [Not Recovered/Not Resolved]
  - Red blood cell count decreased [Not Recovered/Not Resolved]
  - Platelet count decreased [Recovered/Resolved]
  - Drug ineffective [Unknown]
